FAERS Safety Report 9163554 (Version 1)
Quarter: 2012Q4

REPORT INFORMATION
  Report Type: 
  Country: FR (occurrence: FR)
  Receive Date: 20121207
  Receipt Date: 20121207
  Transmission Date: 20130627
  Serious: Yes (Hospitalization)
  Sender: FDA-Public Use
  Company Number: FR-BAUSCH-BL-2012-001903

PATIENT
  Sex: Female

DRUGS (9)
  1. CARTEOL [Suspect]
     Indication: EYE INFECTION TOXOPLASMAL
     Route: 047
     Dates: start: 20120917, end: 20121017
  2. CORTANCYL [Suspect]
     Indication: EYE INFECTION TOXOPLASMAL
     Route: 048
     Dates: start: 20120917, end: 20120925
  3. CORTANCYL [Suspect]
     Route: 048
     Dates: start: 20120926, end: 20121003
  4. CORTANCYL [Suspect]
     Route: 048
     Dates: start: 20121004, end: 20121007
  5. CORTANCYL [Suspect]
     Route: 048
     Dates: start: 20121008, end: 20121010
  6. AZITHROMYCIN [Suspect]
     Indication: EYE INFECTION TOXOPLASMAL
     Route: 048
     Dates: start: 20120917, end: 20121030
  7. MALOCIDE [Suspect]
     Indication: EYE INFECTION TOXOPLASMAL
     Route: 048
     Dates: start: 20120917, end: 20121030
  8. VEXOL [Suspect]
     Indication: EYE INFECTION TOXOPLASMAL
     Route: 047
     Dates: start: 20120917, end: 20121017
  9. MYDRIATICUM [Suspect]
     Indication: EYE INFECTION TOXOPLASMAL
     Route: 047
     Dates: start: 20120917, end: 20120924

REACTIONS (3)
  - Benign intracranial hypertension [Recovering/Resolving]
  - Cough [None]
  - CSF protein increased [None]
